FAERS Safety Report 5743575-2 (Version None)
Quarter: 2008Q2

REPORT INFORMATION
  Report Type: 
  Country: None (occurrence: None)
  Receive Date: 20080520
  Receipt Date: 20080507
  Transmission Date: 20081010
  Serious: Yes (Other)
  Sender: FDA-Public Use
  Company Number: PHHY2008AU07382

PATIENT
  Age: 70 Year
  Sex: Female
  Weight: 66 kg

DRUGS (2)
  1. FAMVIR [Suspect]
     Indication: HERPES ZOSTER
     Dosage: 600 MG, QD
     Route: 048
     Dates: start: 19991027, end: 19991102
  2. DIAMICRON [Concomitant]
     Indication: DIABETES MELLITUS
     Dosage: 240 MG, QD
     Route: 048

REACTIONS (1)
  - DIABETES MELLITUS [None]
